FAERS Safety Report 9975818 (Version 4)
Quarter: 2014Q1

REPORT INFORMATION
  Report Type: Spontaneous
  Country: US (occurrence: US)
  Receive Date: 20140306
  Receipt Date: 20140327
  Transmission Date: 20141002
  Serious: Yes (Disabling)
  Sender: FDA-Public Use
  Company Number: CHPA2014US002839

PATIENT
  Age: 63 Year
  Sex: Male

DRUGS (2)
  1. VOLTAREN GEL [Suspect]
     Indication: FAT TISSUE INCREASED
     Dosage: 1/5 OF A DOSAGE OF TOOTHPASTE, UNK
     Route: 061
  2. VOLTAREN GEL [Suspect]
     Indication: OFF LABEL USE

REACTIONS (3)
  - Disability [Not Recovered/Not Resolved]
  - Therapeutic response unexpected [Unknown]
  - Expired drug administered [Unknown]
